FAERS Safety Report 5630113-8 (Version None)
Quarter: 2008Q1

REPORT INFORMATION
  Report Type: 
  Country: None (occurrence: None)
  Receive Date: 20080218
  Receipt Date: 20080207
  Transmission Date: 20080703
  Serious: Yes (Hospitalization, Other)
  Sender: FDA-Public Use
  Company Number: PHBS2008BR01965

PATIENT
  Age: 65 Year
  Sex: Male
  Weight: 70 kg

DRUGS (2)
  1. EXFORGE [Suspect]
     Dosage: VALS 160 / AMLO 10 MG/DAY
     Route: 048
     Dates: start: 20060101
  2. PARACETAMOL [Concomitant]
     Indication: SURGERY
     Dosage: 750 MG/DAY
     Dates: start: 20071201

REACTIONS (2)
  - BONE DISORDER [None]
  - SURGERY [None]
